FAERS Safety Report 20701304 (Version 1)
Quarter: 2022Q2

REPORT INFORMATION
  Report Type: Spontaneous
  Country: FR (occurrence: FR)
  Receive Date: 20220412
  Receipt Date: 20220412
  Transmission Date: 20220721
  Serious: Yes (Hospitalization)
  Sender: FDA-Public Use
  Company Number: None

PATIENT
  Age: 74 Year
  Sex: Female

DRUGS (1)
  1. CLOZAPINE [Suspect]
     Active Substance: CLOZAPINE
     Indication: Product used for unknown indication
     Dosage: THERAPY START DATE NASK
     Route: 048
     Dates: end: 20220112

REACTIONS (3)
  - Hypersomnia [Recovered/Resolved]
  - Fall [Recovered/Resolved]
  - Parkinson^s disease [Recovered/Resolved]
